FAERS Safety Report 7345860-X (Version None)
Quarter: 2011Q1

REPORT INFORMATION
  Report Type: 
  Country: None (occurrence: None)
  Receive Date: 20110311
  Receipt Date: 20110303
  Transmission Date: 20110831
  Serious: No
  Sender: FDA-Public Use
  Company Number: US-BIOGENIDEC-2011BI000804

PATIENT
  Age: 19 Year
  Sex: Female
  Weight: 92 kg

DRUGS (1)
  1. TYSABRI [Suspect]
     Indication: MULTIPLE SCLEROSIS
     Route: 042
     Dates: start: 20101022

REACTIONS (5)
  - VOMITING [None]
  - POST LUMBAR PUNCTURE SYNDROME [None]
  - HEADACHE [None]
  - NAUSEA [None]
  - FEELING ABNORMAL [None]
